FAERS Safety Report 7391834-2 (Version None)
Quarter: 2011Q2

REPORT INFORMATION
  Report Type: 
  Country: None (occurrence: None)
  Receive Date: 20110404
  Receipt Date: 20110325
  Transmission Date: 20111010
  Serious: Yes (Hospitalization)
  Sender: FDA-Public Use
  Company Number: FR-ROCHE-767977

PATIENT
  Sex: Female
  Weight: 59 kg

DRUGS (16)
  1. NOVORAPID [Concomitant]
     Dosage: 34 UNITS DAIILY
     Dates: start: 20101026
  2. CERTICAN [Suspect]
     Route: 048
     Dates: start: 20110118
  3. INIPOMP [Concomitant]
     Dates: start: 20101012
  4. TEMERIT [Concomitant]
     Dates: start: 20101105
  5. CORTANCYL [Suspect]
     Route: 048
     Dates: start: 20101012
  6. CORTANCYL [Suspect]
     Route: 048
     Dates: start: 20110112
  7. LANTUS [Concomitant]
     Dosage: 16 UNITS DAILY
     Dates: start: 20101026
  8. NOCTRAN [Concomitant]
     Dates: start: 20101026
  9. SODIUM BICARBONATE [Concomitant]
     Dates: start: 20101102, end: 20110217
  10. MYCOPHENOLATE MOFETIL [Suspect]
     Dosage: DOSE REDUCED
     Route: 048
  11. AMLODIPINE BESYLATE [Concomitant]
     Dates: start: 20101015
  12. EPREX [Concomitant]
     Dosage: WEEKLY.
     Dates: start: 20110107
  13. MYCOPHENOLATE MOFETIL [Suspect]
     Route: 048
     Dates: start: 20101011
  14. MYCOPHENOLATE MOFETIL [Suspect]
     Route: 048
     Dates: start: 20110108
  15. CERTICAN [Suspect]
     Route: 048
     Dates: start: 20101119
  16. CORTANCYL [Suspect]
     Dosage: DOSE INCREASED
     Route: 048

REACTIONS (1)
  - DEEP VEIN THROMBOSIS [None]
